FAERS Safety Report 10201308 (Version 1)
Quarter: 2014Q2

REPORT INFORMATION
  Report Type: Spontaneous
  Country: GB (occurrence: GB)
  Receive Date: 20140528
  Receipt Date: 20140528
  Transmission Date: 20141212
  Serious: Yes (Other)
  Sender: FDA-Public Use
  Company Number: GB-PFIZER INC-2014142005

PATIENT
  Age: 47 Year
  Sex: Female

DRUGS (1)
  1. CHAMPIX [Suspect]
     Indication: SMOKING CESSATION THERAPY
     Dosage: 1 MG, 2X/DAY
     Dates: start: 20140405, end: 20140506

REACTIONS (5)
  - Violence-related symptom [Not Recovered/Not Resolved]
  - Anger [Not Recovered/Not Resolved]
  - Frustration [Not Recovered/Not Resolved]
  - Restlessness [Not Recovered/Not Resolved]
  - Distractibility [Not Recovered/Not Resolved]
